FAERS Safety Report 5763395-2 (Version None)
Quarter: 2008Q2

REPORT INFORMATION
  Report Type: 
  Country: None (occurrence: None)
  Receive Date: 20080609
  Receipt Date: 20080604
  Transmission Date: 20081010
  Serious: Yes (Hospitalization)
  Sender: FDA-Public Use
  Company Number: JP-BOEHRINGER INGELHEIM GMBH, GERMANY-2008-BP-08351NB

PATIENT
  Age: 38 Year
  Sex: Female

DRUGS (5)
  1. MICARDIS [Suspect]
     Indication: HYPERTENSION
     Route: 048
  2. SIMVASTATIN [Concomitant]
     Route: 065
  3. METFORMIN HYDROCHLORIDE [Concomitant]
     Route: 065
  4. GLIMEPIRIDE [Concomitant]
     Route: 065
  5. INSULIN [Concomitant]
     Route: 065
     Dates: start: 20060801

REACTIONS (4)
  - GENERALISED OEDEMA [None]
  - HYPERLIPIDAEMIA [None]
  - PREGNANCY INDUCED HYPERTENSION [None]
  - PROTEIN URINE PRESENT [None]
